FAERS Safety Report 5645296-3 (Version None)
Quarter: 2008Q1

REPORT INFORMATION
  Report Type: 
  Country: None (occurrence: None)
  Receive Date: 20080229
  Receipt Date: 20080218
  Transmission Date: 20080703
  Serious: Yes (Death)
  Sender: FDA-Public Use
  Company Number: US-ROCHE-540748

PATIENT
  Age: 90 Year
  Sex: Male

DRUGS (1)
  1. XELODA [Suspect]
     Indication: COLORECTAL CANCER
     Dosage: EARLIER DOSAGES WERE UNKNOWN.
     Route: 065

REACTIONS (2)
  - ADVERSE REACTION [None]
  - COLORECTAL CANCER [None]
